FAERS Safety Report 12069855 (Version 1)
Quarter: 2016Q1

REPORT INFORMATION
  Report Type: Spontaneous
  Country: US (occurrence: US)
  Receive Date: 20160211
  Receipt Date: 20160211
  Transmission Date: 20160526
  Serious: Yes (Other)
  Sender: FDA-Public Use
  Company Number: US-CIPLA LTD.-2016US00967

PATIENT

DRUGS (6)
  1. RITONAVIR. [Suspect]
     Active Substance: RITONAVIR
     Dosage: 100 MG, QD
     Route: 065
  2. RITONAVIR. [Suspect]
     Active Substance: RITONAVIR
     Dosage: 200 MG ONCE DAILY IN THE EVENING OR 100 MG TWICE DAILY IN THE MORNING AND EVENING
     Route: 065
  3. DASABUVIR [Suspect]
     Active Substance: DASABUVIR
     Dosage: 400 MG TWICE DAILY OR 250 MG TWICE DAILY
     Route: 065
  4. OMBITASVIR [Suspect]
     Active Substance: OMBITASVIR
     Dosage: 25 MG, QD
     Route: 065
  5. PARITAPREVIR [Suspect]
     Active Substance: PARITAPREVIR
     Dosage: 150 MG, QD
     Route: 065
  6. LOPINAVIR [Suspect]
     Active Substance: LOPINAVIR
     Dosage: 800 MG ONCE DAILY IN THE EVENING OR 400 MG TWICE DAILY IN THE MORNING AND EVENING
     Route: 065

REACTIONS (1)
  - Nasopharyngitis [Unknown]
